FAERS Safety Report 21654226 (Version 3)
Quarter: 2023Q1

REPORT INFORMATION
  Report Type: Report from Study
  Country: US (occurrence: US)
  Receive Date: 20221129
  Receipt Date: 20230301
  Transmission Date: 20230418
  Serious: No
  Sender: FDA-Public Use
  Company Number: US-002147023-NVSC2022US264647

PATIENT
  Age: 10 Year
  Sex: Male

DRUGS (2)
  1. ILARIS [Suspect]
     Active Substance: CANAKINUMAB
     Indication: Product used for unknown indication
     Dosage: 107 MG, Q4W
     Route: 058
     Dates: start: 20220105
  2. ILARIS [Suspect]
     Active Substance: CANAKINUMAB
     Dosage: 114 MG, OTHER (EVERY 28 DAY)
     Route: 058

REACTIONS (2)
  - Product prescribing error [Unknown]
  - Drug ineffective [Unknown]

NARRATIVE: CASE EVENT DATE: 20221122
